FAERS Safety Report 21497060 (Version 1)
Quarter: 2022Q4

REPORT INFORMATION
  Report Type: Spontaneous
  Country: US (occurrence: US)
  Receive Date: 20221023
  Receipt Date: 20221023
  Transmission Date: 20230113
  Serious: No
  Sender: FDA-Public Use
  Company Number: US-CELLTRION INC.-2022US012284

PATIENT

DRUGS (15)
  1. INFLECTRA [Suspect]
     Active Substance: INFLIXIMAB-DYYB
     Indication: Product used for unknown indication
     Dosage: 500 MG EVERY 7 WEEKS
     Route: 042
  2. INFLECTRA [Suspect]
     Active Substance: INFLIXIMAB-DYYB
     Dosage: 500 MG IN SODIUM CHLORIDE 0.9% (NS) 250 ML INFUSION AT 9MG/KG AT UNSPECIFIED FREQUENCY
     Route: 042
     Dates: end: 20220726
  3. FOSAMAX [Concomitant]
     Active Substance: ALENDRONATE SODIUM
     Dosage: 70 MG, 1/WEEK
     Route: 048
     Dates: start: 20211104
  4. ARAVA [Concomitant]
     Active Substance: LEFLUNOMIDE
     Dosage: 10 MG, DAILY
     Route: 048
     Dates: start: 20211104
  5. DELTASONE [Concomitant]
     Active Substance: PREDNISONE
     Dosage: 5 MG AS NEEDED
     Route: 048
     Dates: start: 20211104
  6. DELTASONE [Concomitant]
     Active Substance: PREDNISONE
     Dosage: 5 MG AS NEEDED
     Route: 048
     Dates: start: 20220519
  7. BACTROBAN [Concomitant]
     Active Substance: MUPIROCIN\MUPIROCIN CALCIUM
     Dosage: APPLY TWICE DAILY TO CRACKS AND FISSURES ON THE HANDS UNTIL WELL HEALED
     Dates: start: 20220519
  8. PRILOSEC [Concomitant]
     Active Substance: OMEPRAZOLE MAGNESIUM
     Dosage: 20 MG, DAILY
     Route: 048
     Dates: start: 20220510
  9. KENALOG [Concomitant]
     Active Substance: TRIAMCINOLONE ACETONIDE
     Indication: Condition aggravated
     Dosage: APPLY TWICE DAILY TO ITCHY RASH ON THE ARMS AND HANDS FOR UP TO 2 WEEKS/MONTH AS NEEDED FOR FLARES
     Dates: start: 20220519
  10. SODIUM CHLORIDE [Concomitant]
     Active Substance: SODIUM CHLORIDE
     Dosage: 250 MILLILITER, ONCE
     Route: 042
     Dates: end: 20220726
  11. SOLU-MEDROL [Concomitant]
     Active Substance: METHYLPREDNISOLONE SODIUM SUCCINATE
     Dosage: 40 MG, ONCE
     Route: 042
     Dates: end: 20220726
  12. TYLENOL [Concomitant]
     Active Substance: ACETAMINOPHEN
     Dosage: 650 MG, ONCE
     Route: 048
     Dates: end: 20220726
  13. REMICADE [Concomitant]
     Active Substance: INFLIXIMAB
  14. VITAMIN D NOS [Concomitant]
     Active Substance: VITAMIN D NOS
     Route: 048
  15. OMEGA-3 FATTY ACIDS [Concomitant]
     Active Substance: OMEGA-3 FATTY ACIDS
     Route: 048

REACTIONS (1)
  - Unevaluable event [Unknown]
